FAERS Safety Report 10355945 (Version 2)
Quarter: 2018Q1

REPORT INFORMATION
  Report Type: Report from Study
  Country: US (occurrence: US)
  Receive Date: 20140801
  Receipt Date: 20180321
  Transmission Date: 20180508
  Serious: Yes (Hospitalization)
  Sender: FDA-Public Use
  Company Number: US-ROCHE-1442081

PATIENT
  Sex: Male
  Weight: 6.04 kg

DRUGS (8)
  1. NUTROPIN AQ [Suspect]
     Active Substance: SOMATROPIN
     Indication: GROWTH HORMONE DEFICIENCY
  2. PERIACTIN [Concomitant]
     Active Substance: CYPROHEPTADINE HYDROCHLORIDE
     Route: 065
  3. NUTROPIN AQ [Suspect]
     Active Substance: SOMATROPIN
     Indication: SILVER-RUSSELL SYNDROME
     Route: 058
  4. NUTROPIN AQ [Suspect]
     Active Substance: SOMATROPIN
     Indication: BODY HEIGHT BELOW NORMAL
     Dosage: QD
     Route: 058
     Dates: start: 20131203
  5. NUTROPIN AQ [Suspect]
     Active Substance: SOMATROPIN
     Indication: HYPOPITUITARISM
     Route: 058
  6. CORN STARCH [Concomitant]
     Active Substance: STARCH, CORN
     Route: 065
  7. OMEPRAZOLE. [Concomitant]
     Active Substance: OMEPRAZOLE
     Route: 065
  8. NOVOFINE [Concomitant]
     Active Substance: INSULIN NOS

REACTIONS (8)
  - Urine ketone body present [Unknown]
  - Oral mucosal discolouration [Unknown]
  - Viral infection [Unknown]
  - Nausea [Unknown]
  - Injection site pain [Unknown]
  - Vomiting [Unknown]
  - Lethargy [Unknown]
  - Hypoglycaemia [Unknown]
